FAERS Safety Report 6875943-X (Version None)
Quarter: 2010Q3

REPORT INFORMATION
  Report Type: 
  Country: None (occurrence: None)
  Receive Date: 20100727
  Receipt Date: 20100716
  Transmission Date: 20110219
  Serious: Yes (Other)
  Sender: FDA-Public Use
  Company Number: US-JNJCH-2010016967

PATIENT
  Age: 45 Year
  Weight: 63.5 kg

DRUGS (1)
  1. SUDAFED 12 HOUR [Suspect]
     Indication: SINUSITIS
     Dosage: TEXT:UNSPECIFIED ^OFF AND ON^
     Route: 048

REACTIONS (2)
  - MYOCLONUS [None]
  - WRONG TECHNIQUE IN DRUG USAGE PROCESS [None]
